FAERS Safety Report 7907573-2 (Version None)
Quarter: 2011Q4

REPORT INFORMATION
  Report Type: 
  Country: None (occurrence: None)
  Receive Date: 20111110
  Receipt Date: 20111102
  Transmission Date: 20120403
  Serious: Yes (Hospitalization)
  Sender: FDA-Public Use
  Company Number: PHHY2011JP89036

PATIENT
  Sex: Male

DRUGS (9)
  1. GABAPENTIN [Concomitant]
     Indication: EPILEPSY
     Dosage: 800 MG (DAILY)
     Route: 048
     Dates: start: 20090101
  2. GABAPENTIN [Concomitant]
     Dosage: 1200 MG, UNK
     Route: 048
     Dates: start: 20100125
  3. PHENYTOIN SODIUM CAP [Concomitant]
     Indication: EPILEPSY
     Dosage: 200 MG, UNK
     Route: 048
     Dates: start: 20110104, end: 20110113
  4. FAMOTIDINE [Concomitant]
     Indication: GASTRITIS
     Dosage: 20 MG, UNK
     Route: 048
     Dates: start: 20100125
  5. TEGRETOL [Suspect]
     Indication: EPILEPSY
     Dosage: 400 MG, DAILY
     Route: 048
     Dates: start: 20100125, end: 20101225
  6. TEGRETOL [Suspect]
     Dosage: 500 MG, UNK
     Route: 048
     Dates: start: 20101225, end: 20110104
  7. KEPPRA [Concomitant]
     Indication: GRAND MAL CONVULSION
     Dosage: 1500 MG, UNK
     Route: 048
     Dates: start: 20110109, end: 20110127
  8. PHENOBARBITAL TAB [Concomitant]
     Indication: EPILEPSY
     Dosage: 60 MG, UNK
     Route: 048
     Dates: start: 20110113, end: 20110127
  9. GABAPENTIN [Concomitant]
     Dosage: 1600 MG, UNK
     Route: 048
     Dates: end: 20110109

REACTIONS (8)
  - MUSCLE SPASMS [None]
  - WHITE BLOOD CELL COUNT DECREASED [None]
  - EPILEPSY [None]
  - GRAND MAL CONVULSION [None]
  - HYPONATRAEMIA [None]
  - EOSINOPHIL COUNT INCREASED [None]
  - STATUS EPILEPTICUS [None]
  - DEPRESSED LEVEL OF CONSCIOUSNESS [None]
